FAERS Safety Report 5605826-4 (Version None)
Quarter: 2008Q1

REPORT INFORMATION
  Report Type: 
  Country: None (occurrence: None)
  Receive Date: 20080129
  Receipt Date: 20080118
  Transmission Date: 20080703
  Serious: Yes (Other)
  Sender: FDA-Public Use
  Company Number: PHBS2008FI01089

PATIENT
  Age: 32 Year
  Sex: Female

DRUGS (3)
  1. LITO [Concomitant]
     Indication: BIPOLAR DISORDER
     Dates: start: 20070101
  2. DEPRAKINE [Concomitant]
     Dates: start: 20070101
  3. LEPONEX [Suspect]
     Indication: BIPOLAR DISORDER
     Dosage: 200 MG/DAY
     Dates: start: 20060721

REACTIONS (22)
  - ABDOMINAL DISTENSION [None]
  - BURNOUT SYNDROME [None]
  - CAESAREAN SECTION [None]
  - CARDIAC DISORDER [None]
  - CONVULSION [None]
  - DEPRESSED LEVEL OF CONSCIOUSNESS [None]
  - DIARRHOEA [None]
  - DRUG EXPOSURE DURING PREGNANCY [None]
  - DRUG INTOLERANCE [None]
  - DYSGEUSIA [None]
  - EMOTIONAL DISORDER [None]
  - EYE PAIN [None]
  - HEADACHE [None]
  - MYALGIA [None]
  - NAUSEA [None]
  - NORMAL NEWBORN [None]
  - OEDEMA PERIPHERAL [None]
  - PALLOR [None]
  - PHARYNGOLARYNGEAL PAIN [None]
  - RENAL PAIN [None]
  - SALIVARY HYPERSECRETION [None]
  - VOMITING [None]
